FAERS Safety Report 17584899 (Version 1)
Quarter: 2020Q1

REPORT INFORMATION
  Report Type: Spontaneous
  Country: GB (occurrence: GB)
  Receive Date: 20200326
  Receipt Date: 20200326
  Transmission Date: 20200409
  Serious: Yes (Disabling)
  Sender: FDA-Public Use
  Company Number: GB-COVIS PHARMA B.V.-2020COV00125

PATIENT
  Sex: Female

DRUGS (3)
  1. BISOPROLOL [Concomitant]
     Active Substance: BISOPROLOL
     Indication: TACHYCARDIA
     Dosage: UNK
     Route: 048
     Dates: start: 201707
  2. ALVESCO [Suspect]
     Active Substance: CICLESONIDE
     Indication: ASTHMA
     Dosage: 160 ?G, 1X/DAY
     Dates: start: 20191104
  3. ALVESCO [Suspect]
     Active Substance: CICLESONIDE
     Dosage: 80 ?G, 1X/DAY
     Dates: start: 20191220

REACTIONS (6)
  - Lethargy [Not Recovered/Not Resolved]
  - Depression [Not Recovered/Not Resolved]
  - Depressed mood [Not Recovered/Not Resolved]
  - Decreased appetite [Unknown]
  - Apathy [Unknown]
  - Weight increased [Unknown]
